FAERS Safety Report 12798675 (Version 4)
Quarter: 2016Q4

REPORT INFORMATION
  Report Type: Spontaneous
  Country: TR (occurrence: TR)
  Receive Date: 20160930
  Receipt Date: 20161223
  Transmission Date: 20170207
  Serious: Yes (Hospitalization, Other)
  Sender: FDA-Public Use
  Company Number: TR-JNJFOC-20160927255

PATIENT
  Age: 12 Year
  Sex: Male
  Weight: 40 kg

DRUGS (2)
  1. METHYLPHENIDATE HYDROCHLORIDE. [Suspect]
     Active Substance: METHYLPHENIDATE HYDROCHLORIDE
     Indication: ATTENTION DEFICIT/HYPERACTIVITY DISORDER
     Dosage: 15 TABLETS OF 36 MG
     Route: 048
  2. METHYLPHENIDATE HYDROCHLORIDE. [Suspect]
     Active Substance: METHYLPHENIDATE HYDROCHLORIDE
     Indication: ATTENTION DEFICIT/HYPERACTIVITY DISORDER
     Route: 048

REACTIONS (14)
  - Blood pressure increased [Recovered/Resolved]
  - Dyskinesia [Recovered/Resolved]
  - Toxicity to various agents [Recovered/Resolved]
  - Logorrhoea [Recovered/Resolved]
  - Paraesthesia [Recovered/Resolved]
  - Restlessness [Recovered/Resolved]
  - Overdose [Unknown]
  - Hallucination, visual [Recovered/Resolved]
  - Suicide attempt [Unknown]
  - Hallucination, tactile [Recovered/Resolved]
  - Disorientation [Recovered/Resolved]
  - Agitation [Recovered/Resolved]
  - Heart rate increased [Recovered/Resolved]
  - Body temperature increased [Recovered/Resolved]
